FAERS Safety Report 9168653 (Version 2)
Quarter: 2013Q2

REPORT INFORMATION
  Report Type: Spontaneous
  Country: GB (occurrence: GB)
  Receive Date: 20130318
  Receipt Date: 20130407
  Transmission Date: 20140414
  Serious: Yes (Other)
  Sender: FDA-Public Use
  Company Number: GB-BRISTOL-MYERS SQUIBB COMPANY-17456245

PATIENT
  Age: 39 Year
  Sex: Male

DRUGS (7)
  1. REYATAZ [Suspect]
     Indication: HIV INFECTION
     Route: 048
     Dates: start: 20090113, end: 20130305
  2. RITONAVIR [Suspect]
     Indication: HIV INFECTION
     Dates: start: 20090113, end: 20130305
  3. TRUVADA [Suspect]
     Dates: start: 20090113, end: 20120106
  4. KIVEXA [Suspect]
     Dates: start: 20120106
  5. SERTRALINE [Concomitant]
     Indication: DEPRESSION
     Dates: start: 201102, end: 201112
  6. TERBINAFINE [Concomitant]
     Indication: ONYCHOMYCOSIS
     Dates: start: 201011, end: 201112
  7. VITAMIN D [Concomitant]

REACTIONS (8)
  - Renal impairment [Unknown]
  - Headache [Not Recovered/Not Resolved]
  - Lethargy [Not Recovered/Not Resolved]
  - Myalgia [Not Recovered/Not Resolved]
  - Nausea [Not Recovered/Not Resolved]
  - Fatigue [Not Recovered/Not Resolved]
  - Sleep disorder [Not Recovered/Not Resolved]
  - Depressed mood [Not Recovered/Not Resolved]
